FAERS Safety Report 10366123 (Version 1)
Quarter: 2014Q3

REPORT INFORMATION
  Report Type: Spontaneous
  Country: GB (occurrence: None)
  Receive Date: 20140804
  Receipt Date: 20140804
  Transmission Date: 20150326
  Serious: Yes (Other)
  Sender: FDA-Public Use
  Company Number: VAL_03250_2014

PATIENT
  Age: 22 Year
  Sex: Female

DRUGS (5)
  1. METOPROLOL TARTRATE (METOPROLOL) [Suspect]
     Active Substance: METOPROLOL TARTRATE
     Indication: PRODUCT USED FOR UNKNOWN INDICATION
     Dosage: PER DAY IN DIVIDED DOSES
  2. SUXAMETHONIUM (SUXAMETHONIUM) [Suspect]
     Active Substance: SUCCINYLCHOLINE
     Indication: PRODUCT USED FOR UNKNOWN INDICATION
     Dosage: DF
  3. THIOPENTAL (THIOPENTONE) [Suspect]
     Active Substance: THIOPENTAL
     Indication: PRODUCT USED FOR UNKNOWN INDICATION
     Dosage: DF
  4. NITROUS OXIDE (NITROUS OXIDE) [Suspect]
     Active Substance: NITROUS OXIDE
     Indication: PRODUCT USED FOR UNKNOWN INDICATION
     Dosage: DF
  5. SEVOFLURANE (SEVOFLURANE) (SEVOFLURANE) [Suspect]
     Active Substance: SEVOFLURANE
     Indication: PRODUCT USED FOR UNKNOWN INDICATION
     Dosage: DF

REACTIONS (4)
  - Heart rate increased [None]
  - Maternal exposure during pregnancy [None]
  - Blood pressure increased [None]
  - Caesarean section [None]
